FAERS Safety Report 7096611-8 (Version None)
Quarter: 2010Q4

REPORT INFORMATION
  Report Type: 
  Country: None (occurrence: None)
  Receive Date: 20101111
  Receipt Date: 20101108
  Transmission Date: 20110411
  Serious: Yes (Other)
  Sender: FDA-Public Use
  Company Number: GB-MERCK-1011USA01230

PATIENT
  Age: 56 Year
  Sex: Female

DRUGS (1)
  1. DECADRON [Suspect]
     Indication: MENINGIOMA
     Route: 048

REACTIONS (8)
  - ASTHENIA [None]
  - CARDIAC FLUTTER [None]
  - FATIGUE [None]
  - FEELING ABNORMAL [None]
  - HEADACHE [None]
  - MUSCLE TWITCHING [None]
  - MUSCULAR WEAKNESS [None]
  - TREMOR [None]
